FAERS Safety Report 20687719 (Version 2)
Quarter: 2022Q3

REPORT INFORMATION
  Report Type: Spontaneous
  Country: US (occurrence: US)
  Receive Date: 20220408
  Receipt Date: 20220929
  Transmission Date: 20221026
  Serious: Yes (Hospitalization)
  Sender: FDA-Public Use
  Company Number: US-SA-SAC20220405001714

PATIENT
  Age: 69 Year
  Sex: Female

DRUGS (1)
  1. AUBAGIO [Suspect]
     Active Substance: TERIFLUNOMIDE
     Dosage: 7 MG, QD
     Route: 048

REACTIONS (8)
  - Blood pressure increased [Unknown]
  - Pain [Unknown]
  - Dizziness [Unknown]
  - Pain in extremity [Unknown]
  - Back pain [Unknown]
  - Eye disorder [Unknown]
  - Drug effect less than expected [Unknown]
  - Product dose omission issue [Unknown]
